FAERS Safety Report 8907908 (Version 2)
Quarter: 2013Q1

REPORT INFORMATION
  Report Type: Spontaneous
  Country: NL (occurrence: NL)
  Receive Date: 20121114
  Receipt Date: 20130122
  Transmission Date: 20140127
  Serious: Yes (Death)
  Sender: FDA-Public Use
  Company Number: PHHY2012NL104547

PATIENT
  Age: 76 Year
  Sex: Female
  Weight: 49 kg

DRUGS (6)
  1. ACLASTA [Suspect]
     Indication: OSTEOPOROSIS
     Dosage: 5 MG SOLUTION ONCE PER 364 DAYS
     Route: 042
     Dates: start: 201103
  2. ACLASTA [Suspect]
     Dosage: 5 MG SOLUTION ONCE PER 364 DAYS
     Route: 042
     Dates: start: 20120405, end: 20121113
  3. PERINDOPRIL [Concomitant]
     Dosage: 4 MG,
  4. ASCAL [Concomitant]
     Dosage: 100 MG, UNK
  5. METOPROLOL [Concomitant]
     Dosage: 25 MG,
  6. CALCIUM EFFERVESCENT [Concomitant]
     Dosage: 1000 MG, UNK

REACTIONS (1)
  - Death [Fatal]
